FAERS Safety Report 23101714 (Version 21)
Quarter: 2024Q4

REPORT INFORMATION
  Report Type: Spontaneous
  Country: US (occurrence: US)
  Receive Date: 20231025
  Receipt Date: 20241026
  Transmission Date: 20250115
  Serious: Yes (Other)
  Sender: UNITED THERAPEUTICS
  Company Number: US-UNITED THERAPEUTICS-UNT-2023-029777

PATIENT
  Sex: Female
  Weight: 68.027 kg

DRUGS (36)
  1. ORENITRAM [Suspect]
     Active Substance: TREPROSTINIL
     Indication: Pulmonary arterial hypertension
     Dosage: 0.375 MG, BID
     Dates: start: 2023, end: 2023
  2. ORENITRAM [Suspect]
     Active Substance: TREPROSTINIL
     Dosage: 0.125 MG, BID
     Dates: start: 2023, end: 2023
  3. ORENITRAM [Suspect]
     Active Substance: TREPROSTINIL
     Dosage: 1.375 MG, BID
     Dates: start: 2023
  4. ORENITRAM [Suspect]
     Active Substance: TREPROSTINIL
     Dosage: 2 MG, Q12H
  5. ORENITRAM [Suspect]
     Active Substance: TREPROSTINIL
     Dosage: 2.125 MG, Q12H
  6. ORENITRAM [Suspect]
     Active Substance: TREPROSTINIL
     Dosage: 2.5 MG, Q12H
     Dates: end: 202402
  7. ORENITRAM [Suspect]
     Active Substance: TREPROSTINIL
     Dosage: 2.375 MG, Q12H
     Dates: start: 202402, end: 2024
  8. ORENITRAM [Suspect]
     Active Substance: TREPROSTINIL
     Dosage: 1.625 MG, TID
     Dates: start: 2024, end: 2024
  9. ORENITRAM [Suspect]
     Active Substance: TREPROSTINIL
     Dosage: 2.125 MG, TID
     Dates: start: 2024, end: 2024
  10. ORENITRAM [Suspect]
     Active Substance: TREPROSTINIL
     Dosage: 2.5 MG, TID
     Dates: start: 2024, end: 2024
  11. ORENITRAM [Suspect]
     Active Substance: TREPROSTINIL
     Dosage: 2.25 MG, TID
     Dates: start: 2024
  12. ORENITRAM [Suspect]
     Active Substance: TREPROSTINIL
     Dosage: UNK
  13. ORENITRAM [Suspect]
     Active Substance: TREPROSTINIL
     Dosage: UNK
  14. ORENITRAM [Suspect]
     Active Substance: TREPROSTINIL
     Indication: Pulmonary arterial hypertension
     Dosage: UNK
  15. ORENITRAM [Suspect]
     Active Substance: TREPROSTINIL
     Indication: Pulmonary arterial hypertension
     Dosage: UNK
  16. ORENITRAM [Suspect]
     Active Substance: TREPROSTINIL
     Indication: Pulmonary arterial hypertension
     Dosage: UNK
  17. ORENITRAM [Suspect]
     Active Substance: TREPROSTINIL
     Indication: Pulmonary arterial hypertension
     Dosage: UNK
  18. TADALAFIL [Suspect]
     Active Substance: TADALAFIL
     Indication: Product used for unknown indication
     Dosage: UNK
  19. OPSUMIT [Suspect]
     Active Substance: MACITENTAN
     Indication: Pulmonary arterial hypertension
     Dosage: 10 MG, QD
     Dates: start: 202309
  20. SILDENAFIL [Suspect]
     Active Substance: SILDENAFIL
     Indication: Product used for unknown indication
     Dosage: UNK
  21. SOTATERCEPT [Suspect]
     Active Substance: SOTATERCEPT
     Indication: Product used for unknown indication
     Dosage: UNK
  22. SOTATERCEPT [Suspect]
     Active Substance: SOTATERCEPT
     Dosage: 0.3 MG/KG
  23. MELATONIN [Concomitant]
     Active Substance: MELATONIN
     Indication: Product used for unknown indication
  24. GABAPENTIN [Concomitant]
     Active Substance: GABAPENTIN
     Indication: Product used for unknown indication
  25. IBUPROFEN [Concomitant]
     Active Substance: IBUPROFEN
     Indication: Product used for unknown indication
  26. SPIRONOLACTONE [Concomitant]
     Active Substance: SPIRONOLACTONE
     Indication: Product used for unknown indication
  27. TRAZODONE HCL [Concomitant]
     Active Substance: TRAZODONE HYDROCHLORIDE
     Indication: Product used for unknown indication
  28. FUROSEMIDE [Concomitant]
     Active Substance: FUROSEMIDE
     Indication: Product used for unknown indication
  29. ACETAMINOPHEN [Concomitant]
     Active Substance: ACETAMINOPHEN
     Indication: Product used for unknown indication
  30. ZYRTEC [Concomitant]
     Active Substance: CETIRIZINE HYDROCHLORIDE
     Indication: Product used for unknown indication
  31. MUPIROCIN [Concomitant]
     Active Substance: MUPIROCIN
     Indication: Product used for unknown indication
  32. DOXYCYCLINE HYCLATE [Concomitant]
     Active Substance: DOXYCYCLINE HYCLATE
     Indication: Product used for unknown indication
  33. VALACYCLOVIR [Concomitant]
     Active Substance: VALACYCLOVIR HYDROCHLORIDE
     Indication: Oral herpes
     Dosage: 1 TABLET, BID
     Dates: start: 202310, end: 202310
  34. OXYGEN [Concomitant]
     Active Substance: OXYGEN
     Indication: Dyspnoea exertional
     Dosage: 3 LITERS OF OXYGEN (ALL THE TIME), CONTINUING
  35. OXYGEN [Concomitant]
     Active Substance: OXYGEN
     Dosage: USING AT NIGHT ONLY
  36. Hair skin nails [Concomitant]
     Indication: Product used for unknown indication
     Dosage: UNK

REACTIONS (39)
  - Basal cell carcinoma [Unknown]
  - Dental fistula [Unknown]
  - Pain in extremity [Unknown]
  - Arthralgia [Not Recovered/Not Resolved]
  - Rheumatoid factor positive [Unknown]
  - Headache [Unknown]
  - Arthritis [Unknown]
  - Oral herpes [Not Recovered/Not Resolved]
  - Nasopharyngitis [Recovered/Resolved]
  - Oropharyngeal pain [Unknown]
  - Ear pain [Unknown]
  - Nausea [Unknown]
  - COVID-19 [Not Recovered/Not Resolved]
  - Pain [Unknown]
  - Bone pain [Unknown]
  - Dyspnoea exertional [Not Recovered/Not Resolved]
  - Palpitations [Not Recovered/Not Resolved]
  - Chest pain [Unknown]
  - Diarrhoea [Unknown]
  - Pain in jaw [Unknown]
  - Weight fluctuation [Unknown]
  - Tooth infection [Unknown]
  - Depression [Unknown]
  - Pulmonary arterial pressure increased [Unknown]
  - Burning sensation [Unknown]
  - Product use issue [Unknown]
  - Inappropriate schedule of product administration [Unknown]
  - Haemoglobin increased [Unknown]
  - Dyspnoea [Unknown]
  - Gingival bleeding [Unknown]
  - Product dose omission issue [Unknown]
  - Brain fog [Recovering/Resolving]
  - Malaise [Recovering/Resolving]
  - Anxiety [Unknown]
  - Lethargy [Unknown]
  - Memory impairment [Unknown]
  - Paraesthesia [Unknown]
  - Decreased appetite [Unknown]
  - Dyspepsia [Unknown]

NARRATIVE: CASE EVENT DATE: 20230101
